FAERS Safety Report 8964043 (Version 2)
Quarter: 2013Q1

REPORT INFORMATION
  Report Type: Spontaneous
  Country: CA (occurrence: CA)
  Receive Date: 20121213
  Receipt Date: 20130201
  Transmission Date: 20140127
  Serious: Yes (Death, Life-Threatening, Hospitalization, Other)
  Sender: FDA-Public Use
  Company Number: CA-B.I. PHARMACEUTICALS,INC./RIDGEFIELD-2012-CN-02529CN

PATIENT
  Age: 79 Year
  Sex: Male

DRUGS (9)
  1. PRADAX [Suspect]
     Indication: TRANSIENT ISCHAEMIC ATTACK
     Dosage: 300 MG
     Route: 048
  2. COMBIGAN [Concomitant]
  3. CRESTOR [Concomitant]
     Dosage: 40 MG
  4. IRBESARTAN [Concomitant]
     Dosage: 75 MG
  5. MAXIDEX [Concomitant]
  6. PHENYTOIN [Concomitant]
     Dosage: 100 MG
  7. PILOCARPINE [Concomitant]
  8. RHINOCORT AQUA [Concomitant]
  9. TERAZOSIN [Concomitant]
     Dosage: 5 MG

REACTIONS (3)
  - Haemorrhage intracranial [Fatal]
  - Cerebrovascular accident [Fatal]
  - Drug ineffective [Fatal]
